FAERS Safety Report 25842513 (Version 1)
Quarter: 2025Q3

REPORT INFORMATION
  Report Type: Spontaneous
  Country: US (occurrence: None)
  Receive Date: 20250923
  Receipt Date: 20250923
  Transmission Date: 20251020
  Serious: Yes (Hospitalization)
  Sender: FDA-CTU
  Company Number: None

PATIENT
  Sex: Female

DRUGS (3)
  1. SILDENAFIL CITRATE [Suspect]
     Active Substance: SILDENAFIL CITRATE
     Indication: Pulmonary arterial hypertension
     Dosage: FREQUENCY : 3 TIMES A DAY;?
     Route: 048
     Dates: start: 20250220
  2. TYVASO [Suspect]
     Active Substance: TREPROSTINIL
  3. TYVASO DPI MAINT KIT PWD [Concomitant]

REACTIONS (10)
  - Feeling abnormal [None]
  - Peripheral swelling [None]
  - Pulmonary oedema [None]
  - Product use issue [None]
  - Therapy change [None]
  - Somnolence [None]
  - Speech disorder [None]
  - Tremor [None]
  - Decreased appetite [None]
  - Loss of personal independence in daily activities [None]
